FAERS Safety Report 5040241-6 (Version None)
Quarter: 2006Q2

REPORT INFORMATION
  Report Type: 
  Country: None (occurrence: None)
  Receive Date: 20060630
  Receipt Date: 20060626
  Transmission Date: 20061013
  Serious: Yes (Other)
  Sender: FDA-Public Use
  Company Number: US-JNJFOC-20060503079

PATIENT
  Sex: Male

DRUGS (6)
  1. EXTRA STRENGTH TYLENOL [Suspect]
     Indication: SLEEP DISORDER
     Route: 048
  2. METOPROLOL TARTRATE [Concomitant]
  3. COUMADIN [Concomitant]
  4. FUROSEMIDE [Concomitant]
  5. ZOCOR [Concomitant]
  6. VERAPAMIL [Concomitant]

REACTIONS (1)
  - SYNCOPE [None]
